FAERS Safety Report 4727888-9 (Version None)
Quarter: 2005Q3

REPORT INFORMATION
  Report Type: 
  Country: None (occurrence: None)
  Receive Date: 20050728
  Receipt Date: 20050726
  Transmission Date: 20060218
  Serious: Yes (Hospitalization)
  Sender: FDA-Public Use
  Company Number: FR-MERCK-0507FRA00086

PATIENT
  Age: 71 Year
  Sex: Male

DRUGS (6)
  1. PRIMAXIN [Suspect]
     Indication: SEPSIS
     Route: 042
     Dates: start: 20050617, end: 20050630
  2. AMOXICILLIN AND CLAVULANATE POTASSIUM [Suspect]
     Indication: SEPSIS
     Route: 048
     Dates: start: 20050614, end: 20050617
  3. VANCOMYCIN [Suspect]
     Indication: SEPSIS
     Route: 042
     Dates: start: 20050617, end: 20050630
  4. FLUCONAZOLE [Suspect]
     Indication: SEPSIS
     Route: 048
     Dates: start: 20050620, end: 20050630
  5. DILTIAZEM HYDROCHLORIDE [Concomitant]
     Indication: HYPERTENSION
     Route: 048
  6. RAMIPRIL [Concomitant]
     Indication: HYPERTENSION
     Route: 048

REACTIONS (5)
  - ALANINE AMINOTRANSFERASE INCREASED [None]
  - ASPARTATE AMINOTRANSFERASE INCREASED [None]
  - BLOOD ALKALINE PHOSPHATASE INCREASED [None]
  - GAMMA-GLUTAMYLTRANSFERASE INCREASED [None]
  - HEPATIC ENZYME INCREASED [None]
